FAERS Safety Report 16915123 (Version 1)
Quarter: 2019Q4

REPORT INFORMATION
  Report Type: Spontaneous
  Country: GB (occurrence: GB)
  Receive Date: 20191014
  Receipt Date: 20191014
  Transmission Date: 20200122
  Serious: Yes (Other)
  Sender: FDA-Public Use
  Company Number: GB-PFIZER INC-2019435224

PATIENT
  Age: 60 Year
  Sex: Female
  Weight: 66.67 kg

DRUGS (3)
  1. PREGABALIN. [Suspect]
     Active Substance: PREGABALIN
     Dosage: 25 MG, 1X/DAY (MORNING)
  2. PREGABALIN. [Suspect]
     Active Substance: PREGABALIN
     Indication: NEURALGIA
     Dosage: 50 MG, 1X/DAY (DURING THE DAY)
  3. PREGABALIN. [Suspect]
     Active Substance: PREGABALIN
     Dosage: 100 MG, 1X/DAY (NIGHT)
     Route: 048
     Dates: start: 20190906, end: 20190909

REACTIONS (6)
  - Blood pressure increased [Recovered/Resolved with Sequelae]
  - Chest pain [Unknown]
  - Product quality issue [Unknown]
  - Extrasystoles [Recovered/Resolved with Sequelae]
  - Product substitution issue [Unknown]
  - Palpitations [Recovered/Resolved with Sequelae]

NARRATIVE: CASE EVENT DATE: 20190906
